FAERS Safety Report 20755086 (Version 2)
Quarter: 2022Q2

REPORT INFORMATION
  Report Type: Spontaneous
  Country: US (occurrence: US)
  Receive Date: 20220427
  Receipt Date: 20220510
  Transmission Date: 20220720
  Serious: Yes (Other)
  Sender: FDA-Public Use
  Company Number: US-CELGENE-USA-20220205433

PATIENT
  Age: 81 Year
  Sex: Female

DRUGS (3)
  1. REVLIMID [Suspect]
     Active Substance: LENALIDOMIDE
     Indication: Hyponatraemia
     Dosage: 25 MILLIGRAM
     Route: 048
     Dates: start: 202111
  2. REVLIMID [Suspect]
     Active Substance: LENALIDOMIDE
     Dosage: 5 MILLIGRAM
     Route: 048
     Dates: start: 202112
  3. REVLIMID [Suspect]
     Active Substance: LENALIDOMIDE
     Dosage: DAYS 1-21 OF EACH 28-DAY CHEMOTHERAPY CYCLE
     Route: 048

REACTIONS (3)
  - Restlessness [Unknown]
  - Haemoglobin decreased [Unknown]
  - Intentional product use issue [Unknown]
